FAERS Safety Report 10920665 (Version 1)
Quarter: 2015Q1

REPORT INFORMATION
  Report Type: Spontaneous
  Country: US (occurrence: None)
  Receive Date: 20150312
  Receipt Date: 20150312
  Transmission Date: 20150721
  Serious: Yes (Hospitalization)
  Sender: FDA-Public Use
  Company Number: None

PATIENT
  Age: 67 Year
  Sex: Female
  Weight: 94.8 kg

DRUGS (7)
  1. VELIPARIB 100 MG ABBVIE [Suspect]
     Active Substance: VELIPARIB
     Indication: OVARIAN CANCER STAGE IV
     Dosage: 4 PILLS BID ORAL
     Route: 048
     Dates: start: 20140501, end: 20150309
  2. OMEGA 3 [Concomitant]
     Active Substance: OMEGA-3 FATTY ACIDS
  3. LOSARTAN [Concomitant]
     Active Substance: LOSARTAN
  4. CALCIUM [Concomitant]
     Active Substance: CALCIUM
  5. MULTIVITAMIN [Concomitant]
     Active Substance: VITAMINS
  6. VITAMIN C [Concomitant]
     Active Substance: ASCORBIC ACID
  7. TRAMADOL [Concomitant]
     Active Substance: TRAMADOL

REACTIONS (7)
  - Deep vein thrombosis [None]
  - Mobility decreased [None]
  - Nausea [None]
  - Pulmonary embolism [None]
  - Pain in extremity [None]
  - Acute kidney injury [None]
  - Syncope [None]

NARRATIVE: CASE EVENT DATE: 20150309
